FAERS Safety Report 5137998-2 (Version None)
Quarter: 2006Q4

REPORT INFORMATION
  Report Type: 
  Country: None (occurrence: None)
  Receive Date: 20061030
  Receipt Date: 20060328
  Transmission Date: 20070319
  Serious: No
  Sender: FDA-Public Use
  Company Number: US-GLAXOSMITHKLINE-A0599362A

PATIENT
  Age: 59 Year
  Sex: Female

DRUGS (4)
  1. ADVAIR HFA [Suspect]
     Indication: BRONCHITIS
     Dosage: 1PUFF TWICE PER DAY
     Route: 055
     Dates: start: 20060324
  2. ATENOLOL [Concomitant]
  3. PROGESTERONE [Concomitant]
  4. ESTROGENS SOL/INJ [Concomitant]

REACTIONS (3)
  - COUGH [None]
  - EYE PRURITUS [None]
  - EYE SWELLING [None]
